FAERS Safety Report 9179551 (Version 1)
Quarter: 2012Q4

REPORT INFORMATION
  Report Type: Report from Study
  Country: CA (occurrence: CA)
  Receive Date: 20121029
  Receipt Date: 20121029
  Transmission Date: 20130627
  Serious: Yes (Other)
  Sender: FDA-Public Use
  Company Number: CA-ROCHE-1144025

PATIENT
  Sex: Male

DRUGS (5)
  1. VEMURAFENIB [Suspect]
     Indication: METASTATIC MALIGNANT MELANOMA
     Route: 048
     Dates: start: 201208
  2. TYLENOL [Concomitant]
     Indication: PAIN
  3. DILANTIN [Concomitant]
     Indication: CONVULSION
     Route: 065
  4. MANNITOL [Concomitant]
     Indication: CONVULSION
     Route: 065
  5. CITALOPRAM [Concomitant]
     Indication: MOOD ALTERED

REACTIONS (2)
  - Drug ineffective [Unknown]
  - Disease progression [Not Recovered/Not Resolved]
